FAERS Safety Report 5832552-9 (Version None)
Quarter: 2008Q3

REPORT INFORMATION
  Report Type: 
  Country: None (occurrence: None)
  Receive Date: 20080804
  Receipt Date: 20080723
  Transmission Date: 20090109
  Serious: Yes (Other)
  Sender: FDA-Public Use
  Company Number: US-JNJCH-2008019295

PATIENT
  Age: 16 Year
  Sex: Male
  Weight: 86.2 kg

DRUGS (2)
  1. BENADRYL [Suspect]
     Indication: DRUG USE FOR UNKNOWN INDICATION
     Dosage: TEXT:2 OR 3 TABLETS ONCE
     Route: 048
     Dates: start: 20080723, end: 20080723
  2. NYQUIL [Suspect]
     Indication: DRUG USE FOR UNKNOWN INDICATION
     Dosage: TEXT:1/2 BOTTLE ONCE
     Route: 048
     Dates: start: 20080723, end: 20080723

REACTIONS (1)
  - HALLUCINATION, VISUAL [None]
